FAERS Safety Report 8606365-9 (Version None)
Quarter: 2012Q3

REPORT INFORMATION
  Report Type: 
  Country: None (occurrence: None)
  Receive Date: 20120820
  Receipt Date: 20120816
  Transmission Date: 20120928
  Serious: Yes (Life-Threatening, Hospitalization, Other)
  Sender: FDA-Public Use
  Company Number: CA-ROCHE-1103074

PATIENT
  Age: 60 Year
  Sex: Female

DRUGS (14)
  1. HYDROMORPHONE HYDROCHLORIDE [Concomitant]
     Route: 065
  2. RETINOL [Concomitant]
     Route: 065
  3. TYKERB [Suspect]
     Route: 048
  4. PREVACID [Concomitant]
     Route: 065
  5. XELODA [Suspect]
     Indication: PRODUCT USED FOR UNKNOWN INDICATION
     Route: 048
  6. MICARDIS [Concomitant]
     Route: 065
  7. VERAPAMIL HCL [Concomitant]
     Route: 065
  8. CELEBREX [Concomitant]
     Route: 065
  9. COLACE [Concomitant]
     Route: 065
  10. VITAMIN D [Concomitant]
     Route: 065
  11. TYKERB [Suspect]
     Indication: PRODUCT USED FOR UNKNOWN INDICATION
     Route: 048
  12. ANTIHYPERTENSIVE MEDICATIONS [Concomitant]
     Route: 065
  13. ACTONEL [Concomitant]
     Route: 065
  14. SENOKOT [Concomitant]
     Route: 065

REACTIONS (7)
  - DISEASE PROGRESSION [None]
  - RENAL FAILURE ACUTE [None]
  - VOMITING [None]
  - DEHYDRATION [None]
  - DIARRHOEA [None]
  - NEOPLASM MALIGNANT [None]
  - NAUSEA [None]
